FAERS Safety Report 6313626-5 (Version None)
Quarter: 2009Q3

REPORT INFORMATION
  Report Type: 
  Country: None (occurrence: None)
  Receive Date: 20090814
  Receipt Date: 20090814
  Transmission Date: 20100115
  Serious: Yes (Death, Hospitalization)
  Sender: FDA-Public Use
  Company Number: None

PATIENT
  Sex: Male

DRUGS (8)
  1. REVLIMID [Suspect]
     Indication: MULTIPLE MYELOMA
     Dosage: REVLIMID 10MG 2 TIMES/WEEK ORAL
     Route: 048
     Dates: start: 20080301, end: 20080717
  2. DEXAMETHASONE [Concomitant]
  3. NEPHROVITE [Concomitant]
  4. SIMVASTATIN [Concomitant]
  5. MIRTAZAPINE [Concomitant]
  6. CARVEDILOL [Concomitant]
  7. MEGESTROL ACETATE [Concomitant]
  8. VITAMIN B6 [Concomitant]

REACTIONS (5)
  - CARDIAC FAILURE CONGESTIVE [None]
  - CONDITION AGGRAVATED [None]
  - CONGESTIVE CARDIOMYOPATHY [None]
  - FLUID OVERLOAD [None]
  - NEUTROPENIA [None]
